FAERS Safety Report 8596753-1 (Version None)
Quarter: 2012Q3

REPORT INFORMATION
  Report Type: 
  Country: None (occurrence: None)
  Receive Date: 20120815
  Receipt Date: 20120810
  Transmission Date: 20120928
  Serious: Yes (Death)
  Sender: FDA-Public Use
  Company Number: US-PFIZER INC-2012149731

PATIENT
  Age: 79 Year
  Sex: Female

DRUGS (1)
  1. SUTENT [Suspect]
     Indication: METASTATIC RENAL CELL CARCINOMA
     Dosage: 50 MG, 4 WEEKS ON, 2 OFF
     Route: 048
     Dates: start: 20120402, end: 20120513

REACTIONS (3)
  - URINARY TRACT INFECTION [None]
  - CARDIAC FAILURE [None]
  - SEPSIS [None]
